FAERS Safety Report 17423427 (Version 3)
Quarter: 2020Q3

REPORT INFORMATION
  Report Type: Spontaneous
  Country: US (occurrence: US)
  Receive Date: 20200217
  Receipt Date: 20200716
  Transmission Date: 20201102
  Serious: No
  Sender: FDA-Public Use
  Company Number: US-BIOGEN-2020BI00838398

PATIENT
  Age: 55 Year
  Sex: Male
  Weight: 116.68 kg

DRUGS (16)
  1. CLARITIN [Concomitant]
     Active Substance: LORATADINE
     Route: 048
  2. COLACE [Concomitant]
     Active Substance: DOCUSATE SODIUM
     Route: 048
  3. PAXIL [Concomitant]
     Active Substance: PAROXETINE HYDROCHLORIDE
     Route: 048
  4. TAMSULOSIN [Concomitant]
     Active Substance: TAMSULOSIN
     Route: 048
  5. TYSABRI [Suspect]
     Active Substance: NATALIZUMAB
     Indication: MULTIPLE SCLEROSIS
     Dosage: INFUSED OVER 1 HOUR
     Route: 042
     Dates: start: 20180314
  6. ZOFRAN [Concomitant]
     Active Substance: ONDANSETRON HYDROCHLORIDE
     Route: 048
  7. LOSARTAN. [Concomitant]
     Active Substance: LOSARTAN
     Indication: HYPERTENSION
     Dosage: AM DOSE
     Route: 048
  8. ACETAMINOPHEN. [Concomitant]
     Active Substance: ACETAMINOPHEN
     Dosage: EVERY 4 HOURS AS NEEDED
     Route: 048
     Dates: start: 20191121
  9. FIBER CHOICE [Concomitant]
     Route: 048
  10. ROPINIROLE. [Concomitant]
     Active Substance: ROPINIROLE
     Route: 048
  11. ASPIRIN LOW DOSE [Concomitant]
     Active Substance: ASPIRIN
     Route: 048
     Dates: start: 20190329
  12. IBUPROFEN. [Concomitant]
     Active Substance: IBUPROFEN
     Dosage: 4 TIMES A DAY AS NEEDED QID
     Route: 048
     Dates: start: 20170827
  13. ATENOLOL. [Concomitant]
     Active Substance: ATENOLOL
     Indication: HYPERTENSION
     Route: 048
  14. BISACODYL. [Concomitant]
     Active Substance: BISACODYL
     Route: 054
  15. TYLENOL [Concomitant]
     Active Substance: ACETAMINOPHEN
     Route: 048
  16. PROVENTIL HFA [Concomitant]
     Active Substance: ALBUTEROL SULFATE
     Dosage: 1?2 PUFFS EVERY 4?6 HRS AS NEEDED
     Route: 048

REACTIONS (21)
  - Neurogenic bladder [Not Recovered/Not Resolved]
  - Catheter site haemorrhage [Unknown]
  - White blood cell count increased [Not Recovered/Not Resolved]
  - Decubitus ulcer [Not Recovered/Not Resolved]
  - Mean platelet volume decreased [Unknown]
  - Neutrophil count increased [Unknown]
  - Haemoglobin decreased [Not Recovered/Not Resolved]
  - Monocyte percentage increased [Unknown]
  - Bronchitis [Not Recovered/Not Resolved]
  - Malaise [Not Recovered/Not Resolved]
  - Blood urea increased [Unknown]
  - Urinary tract infection [Not Recovered/Not Resolved]
  - Asthenia [Unknown]
  - Monocyte count increased [Unknown]
  - Pain [Not Recovered/Not Resolved]
  - Red blood cell count decreased [Unknown]
  - Haematocrit decreased [Unknown]
  - Blood glucose increased [Unknown]
  - Albumin globulin ratio decreased [Unknown]
  - Wound infection [Unknown]
  - Alanine aminotransferase increased [Unknown]

NARRATIVE: CASE EVENT DATE: 202002
